FAERS Safety Report 6149795-X (Version None)
Quarter: 2009Q2

REPORT INFORMATION
  Report Type: 
  Country: None (occurrence: None)
  Receive Date: 20090402
  Receipt Date: 20081021
  Transmission Date: 20091009
  Serious: Yes (Other)
  Sender: FDA-Public Use
  Company Number: 2008SU0255

PATIENT
  Age: 87 Year
  Sex: Female

DRUGS (6)
  1. SULAR [Suspect]
     Indication: HYPERTENSION
     Dosage: 17MG, QD
  2. LEVOTHYROXINE SODIUM [Concomitant]
  3. ZETIA [Concomitant]
  4. ASPIRIN [Concomitant]
  5. CENTRUM SILVER [Concomitant]
  6. CALCIUM [Concomitant]

REACTIONS (2)
  - DRUG INEFFECTIVE [None]
  - HYPERTENSION [None]
